FAERS Safety Report 5280200-1 (Version None)
Quarter: 2007Q1

REPORT INFORMATION
  Report Type: 
  Country: None (occurrence: None)
  Receive Date: 20070329
  Receipt Date: 20070316
  Transmission Date: 20070707
  Serious: Yes (Death, Hospitalization)
  Sender: FDA-Public Use
  Company Number: GB-ROCHE-479567

PATIENT
  Age: 56 Year
  Sex: Female

DRUGS (7)
  1. CAPECITABINE [Suspect]
     Indication: COLON CANCER
     Dosage: 2000 MG GIVEN AM AND 2500 MG GIVEN PM.
     Route: 048
     Dates: start: 20070103, end: 20070116
  2. BEVACIZUMAB [Suspect]
     Indication: COLON CANCER
     Route: 042
     Dates: start: 20070103
  3. OMEPRAZOLE [Concomitant]
     Route: 048
  4. DIFFLAM ORAL RINSE [Concomitant]
     Indication: STOMATITIS
     Dosage: REPORTED AS ^DIFFLAM MOUTHWASH^
     Route: 048
     Dates: start: 20070116
  5. FLUCONAZOLE [Concomitant]
     Indication: STOMATITIS
     Route: 048
     Dates: start: 20070116
  6. ORABASE [Concomitant]
     Indication: STOMATITIS
     Route: 048
     Dates: start: 20070116, end: 20070119
  7. ACETAMINOPHEN [Concomitant]
     Indication: STOMATITIS
     Dosage: REPORTED AS ^LIQUID PARACETAMOL^
     Route: 048
     Dates: start: 20060116

REACTIONS (1)
  - INFECTION [None]
